FAERS Safety Report 11290679 (Version 1)
Quarter: 2015Q3

REPORT INFORMATION
  Report Type: Spontaneous
  Country: US (occurrence: US)
  Receive Date: 20150722
  Receipt Date: 20150722
  Transmission Date: 20151125
  Serious: No
  Sender: FDA-Public Use
  Company Number: US-UNITED THERAPEUTICS-UNT-2014-010991

PATIENT
  Age: 64 Year
  Sex: Female
  Weight: 65.76 kg

DRUGS (5)
  1. LETAIRIS [Suspect]
     Active Substance: AMBRISENTAN
     Indication: PRODUCT USED FOR UNKNOWN INDICATION
     Dosage: 10 MG, QD
     Route: 065
     Dates: start: 20120921
  2. LETAIRIS [Suspect]
     Active Substance: AMBRISENTAN
     Dosage: 10 MG, QD
     Route: 065
     Dates: start: 20120924
  3. REVATIO [Suspect]
     Active Substance: SILDENAFIL CITRATE
     Indication: PRODUCT USED FOR UNKNOWN INDICATION
     Dosage: 1 TAB, TID
     Route: 065
  4. ADCIRCA [Concomitant]
     Active Substance: TADALAFIL
     Indication: PRODUCT USED FOR UNKNOWN INDICATION
  5. REMODULIN [Suspect]
     Active Substance: TREPROSTINIL
     Indication: PULMONARY ARTERIAL HYPERTENSION
     Dosage: 0.054 ?G/KG/MIN, CONTINUING
     Route: 058
     Dates: start: 20090210

REACTIONS (6)
  - Balance disorder [Unknown]
  - Infusion site nodule [Not Recovered/Not Resolved]
  - Infusion site oedema [Recovering/Resolving]
  - Infusion site erythema [Recovering/Resolving]
  - Infusion site induration [Unknown]
  - Infusion site discomfort [Unknown]

NARRATIVE: CASE EVENT DATE: 201411
